FAERS Safety Report 24659871 (Version 1)
Quarter: 2024Q4

REPORT INFORMATION
  Report Type: Spontaneous
  Country: US (occurrence: US)
  Receive Date: 20241125
  Receipt Date: 20241125
  Transmission Date: 20250114
  Serious: Yes (Hospitalization)
  Sender: BRISTOL-MYERS SQUIBB COMPANY
  Company Number: US-BRISTOL-MYERS SQUIBB COMPANY-2024-182448

PATIENT
  Age: 68 Year
  Sex: Female

DRUGS (1)
  1. ONUREG [Suspect]
     Active Substance: AZACITIDINE
     Indication: Product used for unknown indication
     Dosage: DOSE : 300 MG - DAILY;     FREQ : TAKE 1 TABLET BY MOUTH DAYS 1-14 OF 28 DAY CYCLE
     Route: 048

REACTIONS (1)
  - Adverse event [Unknown]
